FAERS Safety Report 8113148-5 (Version None)
Quarter: 2012Q1

REPORT INFORMATION
  Report Type: 
  Country: None (occurrence: None)
  Receive Date: 20120203
  Receipt Date: 20120127
  Transmission Date: 20120608
  Serious: No
  Sender: FDA-Public Use
  Company Number: US-B.I. PHARMACEUTICALS,INC./RIDGEFIELD-2012-BP-01735BP

PATIENT
  Sex: Female

DRUGS (7)
  1. SPIRIVA [Suspect]
     Indication: CHRONIC OBSTRUCTIVE PULMONARY DISEASE
     Dosage: 18 MCG
     Route: 055
     Dates: start: 20040101
  2. METFORMIN HCL [Concomitant]
     Indication: DIABETES MELLITUS
     Route: 048
  3. UNKNOWN ANTIHYPERTENSIVE [Concomitant]
     Indication: HYPERTENSION
  4. BAYER ASA [Concomitant]
     Dosage: 81 MG
     Route: 048
  5. UNKNOWN INHALER [Concomitant]
     Route: 055
  6. AMARYL [Concomitant]
     Indication: DIABETES MELLITUS
     Route: 048
  7. UNKNOWN DIURETIC [Concomitant]

REACTIONS (1)
  - BRONCHITIS [None]
